FAERS Safety Report 7196491 (Version 3)
Quarter: 2013Q1

REPORT INFORMATION
  Report Type: Spontaneous
  Country: FR (occurrence: FR)
  Receive Date: 20091202
  Receipt Date: 20130211
  Transmission Date: 20140127
  Serious: Yes (Hospitalization)
  Sender: FDA-Public Use
  Company Number: FR-ROCHE-670384

PATIENT
  Age: 50 Year
  Sex: Male

DRUGS (10)
  1. COPEGUS [Suspect]
     Indication: HEPATITIS C
     Route: 048
     Dates: start: 20081115, end: 20090717
  2. TACROLIMUS [Suspect]
     Indication: HEPATITIS C
     Route: 048
     Dates: start: 2006
  3. VIRAFERONPEG [Suspect]
     Indication: HEPATITIS C
     Route: 058
     Dates: start: 20081115, end: 20090717
  4. NEORECORMON [Concomitant]
  5. INEXIUM [Concomitant]
  6. MYCOPHENOLATE MOFETIL [Concomitant]
  7. CANDESARTAN [Concomitant]
  8. NEBIVOLOL [Concomitant]
  9. SPIRONOLACTONE [Concomitant]
     Route: 065
     Dates: start: 2012
  10. FUROSEMIDE [Concomitant]
     Route: 065
     Dates: start: 2012

REACTIONS (3)
  - Cardiac failure [Recovering/Resolving]
  - Pleural effusion [Recovering/Resolving]
  - Dyspnoea [Recovering/Resolving]
